FAERS Safety Report 8044052-9 (Version None)
Quarter: 2012Q1

REPORT INFORMATION
  Report Type: 
  Country: None (occurrence: None)
  Receive Date: 20120113
  Receipt Date: 20120111
  Transmission Date: 20120608
  Serious: Yes (Other)
  Sender: FDA-Public Use
  Company Number: US-JNJFOC-20111210808

PATIENT
  Sex: Female
  Weight: 88.45 kg

DRUGS (3)
  1. LEVAQUIN [Suspect]
     Indication: SINUSITIS
     Route: 048
     Dates: start: 20111119, end: 20111122
  2. LOVASTATIN [Concomitant]
     Indication: BLOOD CHOLESTEROL
     Route: 048
  3. LEVOTHYROXINE SODIUM [Concomitant]
     Indication: HYPOTHYROIDISM
     Route: 048
     Dates: start: 20040101

REACTIONS (6)
  - ARTHRITIS [None]
  - TENDON DISORDER [None]
  - ARTHRALGIA [None]
  - MUSCULOSKELETAL PAIN [None]
  - GROIN PAIN [None]
  - BACK PAIN [None]
